FAERS Safety Report 8341163-5 (Version None)
Quarter: 2012Q2

REPORT INFORMATION
  Report Type: 
  Country: None (occurrence: None)
  Receive Date: 20120507
  Receipt Date: 20120430
  Transmission Date: 20120825
  Serious: No
  Sender: FDA-Public Use
  Company Number: US-PFIZER INC-2012077612

PATIENT
  Sex: Male

DRUGS (5)
  1. VIAGRA [Suspect]
     Indication: ERECTILE DYSFUNCTION
     Dosage: UNK
  2. VALSARTAN [Interacting]
     Dosage: UNK
  3. ZOCOR [Interacting]
     Dosage: UNK
  4. BYSTOLIC [Interacting]
     Dosage: UNK
  5. PLAVIX [Interacting]
     Dosage: UNK

REACTIONS (2)
  - DRUG INTERACTION [None]
  - DRUG EFFECT DECREASED [None]
